FAERS Safety Report 18766288 (Version 1)
Quarter: 2021Q1

REPORT INFORMATION
  Report Type: Report from Study
  Country: None (occurrence: US)
  Receive Date: 20210120
  Receipt Date: 20210120
  Transmission Date: 20210419
  Serious: Yes (Other)
  Sender: FDA-Public Use
  Company Number: US-ABBVIE-21K-163-3734313-00

PATIENT
  Sex: Male

DRUGS (1)
  1. HUMIRA [Suspect]
     Active Substance: ADALIMUMAB
     Indication: RHEUMATOID ARTHRITIS
     Route: 058

REACTIONS (11)
  - Swelling [Not Recovered/Not Resolved]
  - Confusional state [Unknown]
  - Arthritis [Not Recovered/Not Resolved]
  - Renal cancer [Unknown]
  - Gait disturbance [Unknown]
  - Rash macular [Not Recovered/Not Resolved]
  - Aortic disorder [Not Recovered/Not Resolved]
  - Hypertension [Unknown]
  - Renal disorder [Not Recovered/Not Resolved]
  - Rash pruritic [Not Recovered/Not Resolved]
  - Muscle disorder [Unknown]
